FAERS Safety Report 8343003-7 (Version None)
Quarter: 2012Q2

REPORT INFORMATION
  Report Type: 
  Country: None (occurrence: None)
  Receive Date: 20120508
  Receipt Date: 20120430
  Transmission Date: 20120825
  Serious: Yes (Hospitalization, Other)
  Sender: FDA-Public Use
  Company Number: PHEH2012US006219

PATIENT
  Sex: Female
  Weight: 138 kg

DRUGS (5)
  1. CLONIDINE [Concomitant]
     Indication: BLOOD PRESSURE
     Dosage: 0.1 MG, DAILY
     Route: 048
  2. OMEPRAZOLE [Concomitant]
     Dosage: 20 MG, DAILY
     Route: 048
  3. GLEEVEC [Suspect]
     Indication: CHRONIC MYELOID LEUKAEMIA
     Dosage: 300 MG DAILY
     Route: 048
     Dates: start: 20110801, end: 20120301
  4. LISINOPRIL [Concomitant]
     Indication: BLOOD PRESSURE
     Dosage: 40 MG, DAILY
     Route: 048
  5. SIMVASTATIN [Concomitant]
     Indication: BLOOD CHOLESTEROL
     Dosage: 20 MG, DAILY

REACTIONS (4)
  - PULMONARY OEDEMA [None]
  - EJECTION FRACTION DECREASED [None]
  - FLUID RETENTION [None]
  - DYSPNOEA [None]
